FAERS Safety Report 8372820-2 (Version None)
Quarter: 2012Q2

REPORT INFORMATION
  Report Type: 
  Country: None (occurrence: None)
  Receive Date: 20120521
  Receipt Date: 20120507
  Transmission Date: 20120825
  Serious: Yes (Hospitalization, Other)
  Sender: FDA-Public Use
  Company Number: DE-MYLANLABS-2012S1010089

PATIENT
  Age: 24 Year
  Sex: Female
  Weight: 80 kg

DRUGS (9)
  1. LEVOTHYROXINE SODIUM [Concomitant]
     Indication: HYPOTHYROIDISM
     Route: 048
     Dates: start: 20100913, end: 20110626
  2. APSOMOL /00139501/ [Concomitant]
     Indication: BRONCHITIS
     Dosage: GW 13.1-13.6
     Route: 055
     Dates: start: 20101220, end: 20101225
  3. CETIRIZINE HCL [Concomitant]
     Indication: HYPERSENSITIVITY
     Dosage: GW 8-9
     Route: 048
  4. EBENOL [Concomitant]
     Indication: HYPERSENSITIVITY
     Dosage: GW 0-8
     Route: 003
     Dates: start: 20101114, end: 20101117
  5. CLOTRIMAZOLE [Concomitant]
     Indication: PRODUCT USED FOR UNKNOWN INDICATION
     Route: 045
     Dates: start: 20101220, end: 20101226
  6. EMSER SALT [Concomitant]
     Indication: PRODUCT USED FOR UNKNOWN INDICATION
     Dosage: GW 13.1 - 14
     Route: 045
     Dates: start: 20101220, end: 20101226
  7. FOLIC ACID [Concomitant]
     Indication: PROPHYLAXIS OF NEURAL TUBE DEFECT
     Dosage: GW 0-28
     Route: 048
     Dates: start: 20100919, end: 20110404
  8. METFORMIN HCL [Suspect]
     Indication: GLUCOSE TOLERANCE IMPAIRED
     Route: 048
  9. UTROGEST [Concomitant]
     Indication: POLYCYSTIC OVARIES
     Route: 048
     Dates: start: 20100912, end: 20101114

REACTIONS (3)
  - MATERNAL EXPOSURE DURING PREGNANCY [None]
  - GESTATIONAL DIABETES [None]
  - PREMATURE RUPTURE OF MEMBRANES [None]
